FAERS Safety Report 6778391-6 (Version None)
Quarter: 2010Q2

REPORT INFORMATION
  Report Type: 
  Country: None (occurrence: None)
  Receive Date: 20100618
  Receipt Date: 20100309
  Transmission Date: 20101027
  Serious: Yes (Other)
  Sender: FDA-Public Use
  Company Number: US-ASTRAZENECA-2008UW11356

PATIENT
  Age: 14619 Day
  Sex: Male
  Weight: 106.6 kg

DRUGS (11)
  1. SEROQUEL [Suspect]
     Indication: SLEEP DISORDER
     Dosage: 100 TO 300MG
     Route: 048
     Dates: start: 20000711, end: 20070425
  2. SEROQUEL [Suspect]
     Dosage: 100 TO 200 MG AT NIGHT
     Route: 048
     Dates: start: 20000908
  3. ZYPREXA [Concomitant]
     Dates: start: 20040324, end: 20040525
  4. EFFEXOR [Concomitant]
     Dates: start: 20000501
  5. PROZAC [Concomitant]
     Dosage: 20 TO 30 MG DAILY
     Route: 048
     Dates: start: 20000229, end: 20001201
  6. WELLBUTRIN [Concomitant]
     Dates: start: 20000601, end: 20010301
  7. PAXIL [Concomitant]
     Dates: start: 20001122, end: 20010219
  8. PAXIL [Concomitant]
     Dates: start: 20020506, end: 20030911
  9. XANAX [Concomitant]
     Dates: start: 20030818
  10. ZOLOFT [Concomitant]
     Dates: start: 20011008, end: 20020413
  11. DEPAKOTE [Concomitant]
     Dosage: 500 TO 1000 MG DAILY
     Route: 048
     Dates: start: 20030818

REACTIONS (8)
  - ANXIETY [None]
  - BLOOD CHOLESTEROL INCREASED [None]
  - BLOOD TRIGLYCERIDES INCREASED [None]
  - DIABETES MELLITUS [None]
  - GLYCOSURIA [None]
  - OBESITY [None]
  - RENAL FAILURE [None]
  - TRAUMATIC BRAIN INJURY [None]
